FAERS Safety Report 4673973-X (Version None)
Quarter: 2005Q2

REPORT INFORMATION
  Report Type: 
  Country: None (occurrence: None)
  Receive Date: 20050524
  Receipt Date: 20050516
  Transmission Date: 20051028
  Serious: Yes (Other)
  Sender: FDA-Public Use
  Company Number: 2003112910

PATIENT
  Sex: Male

DRUGS (1)
  1. ATORVASTATIN CALCIUM [Suspect]
     Indication: ILL-DEFINED DISORDER
     Dosage: 5 MG
     Dates: end: 20031001

REACTIONS (3)
  - ANXIETY [None]
  - CORONARY ARTERY SURGERY [None]
  - POLYNEUROPATHY [None]
